FAERS Safety Report 4956918-4 (Version None)
Quarter: 2006Q1

REPORT INFORMATION
  Report Type: 
  Country: None (occurrence: None)
  Receive Date: 20060127
  Receipt Date: 20050311
  Transmission Date: 20060701
  Serious: Yes (Other)
  Sender: FDA-Public Use
  Company Number: 05-03-0398

PATIENT
  Age: 15 Year
  Sex: Female
  Weight: 74.8435 kg

DRUGS (2)
  1. CLOZAPINE [Suspect]
     Indication: SCHIZOPHRENIA
     Dosage: 500MG QD, ORAL
     Route: 048
     Dates: start: 20041001, end: 20050311
  2. SEROQUEL [Concomitant]

REACTIONS (6)
  - EAR INFECTION [None]
  - GRANULOCYTOPENIA [None]
  - HEADACHE [None]
  - HERPES SIMPLEX [None]
  - INFLUENZA LIKE ILLNESS [None]
  - LEUKOPENIA [None]
